FAERS Safety Report 9341511 (Version 1)
Quarter: 2013Q2

REPORT INFORMATION
  Report Type: Spontaneous
  Country: IT (occurrence: IT)
  Receive Date: 20130611
  Receipt Date: 20130611
  Transmission Date: 20140414
  Serious: No
  Sender: FDA-Public Use
  Company Number: IT-009507513-1305ITA016213

PATIENT
  Age: 58 Year
  Sex: 0
  Weight: 85 kg

DRUGS (2)
  1. SYCREST [Suspect]
     Indication: BIPOLAR DISORDER
     Dosage: 10 MG, QD
     Route: 060
     Dates: start: 20130304, end: 20130419
  2. VALPROIC ACID [Concomitant]

REACTIONS (6)
  - Paraesthesia [Recovered/Resolved]
  - Asthenia [Recovered/Resolved]
  - Headache [Recovered/Resolved]
  - Gastrointestinal motility disorder [Recovered/Resolved]
  - Off label use [Unknown]
  - Hypotension [Recovered/Resolved]
